FAERS Safety Report 5405312-0 (Version None)
Quarter: 2007Q3

REPORT INFORMATION
  Report Type: 
  Country: None (occurrence: None)
  Receive Date: 20070803
  Receipt Date: 20070731
  Transmission Date: 20080115
  Serious: Yes (Other)
  Sender: FDA-Public Use
  Company Number: B0481666A

PATIENT
  Age: 21 Year
  Sex: Male

DRUGS (1)
  1. MALARONE [Suspect]
     Indication: MALARIA PROPHYLAXIS
     Dosage: 1TAB PER DAY
     Route: 048
     Dates: start: 20070703

REACTIONS (6)
  - DRUG INEFFECTIVE [None]
  - HEADACHE [None]
  - INFLUENZA LIKE ILLNESS [None]
  - MALARIA [None]
  - PYREXIA [None]
  - WEIGHT DECREASED [None]
